FAERS Safety Report 13896134 (Version 1)
Quarter: 2017Q3

REPORT INFORMATION
  Report Type: Spontaneous
  Country: US (occurrence: None)
  Receive Date: 20170816
  Receipt Date: 20170816
  Transmission Date: 20171127
  Serious: No
  Sender: FDA-Public Use
  Company Number: None

PATIENT
  Age: 60 Year
  Sex: Male
  Weight: 49.9 kg

DRUGS (1)
  1. LOSARTAN TABS GENERIC FOR COZAAR 25MG [Suspect]
     Active Substance: LOSARTAN
     Indication: PROPHYLAXIS
     Dosage: ?          QUANTITY:1 ;?
     Route: 048
     Dates: start: 20170610, end: 20170630

REACTIONS (3)
  - Myalgia [None]
  - Lip swelling [None]
  - Dizziness [None]

NARRATIVE: CASE EVENT DATE: 20170610
